FAERS Safety Report 23598190 (Version 2)
Quarter: 2024Q1

REPORT INFORMATION
  Report Type: Spontaneous
  Country: SE (occurrence: SE)
  Receive Date: 20240305
  Receipt Date: 20240311
  Transmission Date: 20240409
  Serious: Yes (Hospitalization)
  Sender: FDA-Public Use
  Company Number: None

PATIENT
  Sex: Female
  Weight: 3 kg

DRUGS (1)
  1. ESCITALOPRAM [Suspect]
     Active Substance: ESCITALOPRAM OXALATE
     Indication: Product used for unknown indication
     Dosage: 1X1
     Route: 064

REACTIONS (5)
  - Neonatal pulmonary hypertension [Recovering/Resolving]
  - Foetal exposure during pregnancy [Recovering/Resolving]
  - Neonatal hypoxia [Recovering/Resolving]
  - Neonatal respiratory failure [Recovering/Resolving]
  - Hypotonia [Recovering/Resolving]

NARRATIVE: CASE EVENT DATE: 20240128
